FAERS Safety Report 11249621 (Version 1)
Quarter: 2015Q3

REPORT INFORMATION
  Report Type: Spontaneous
  Country: US (occurrence: US)
  Receive Date: 20150708
  Receipt Date: 20150708
  Transmission Date: 20151125
  Serious: Yes (Other)
  Sender: FDA-Public Use
  Company Number: US-ELI_LILLY_AND_COMPANY-US200812001802

PATIENT
  Age: 12 Year
  Sex: Female

DRUGS (8)
  1. RAPAMYCIN [Concomitant]
     Active Substance: SIROLIMUS
     Indication: EWING^S SARCOMA METASTATIC
  2. BACTRIM [Concomitant]
     Active Substance: SULFAMETHOXAZOLE\TRIMETHOPRIM
     Dates: start: 20081024
  3. GEMZAR [Suspect]
     Active Substance: GEMCITABINE HYDROCHLORIDE
     Indication: EWING^S SARCOMA METASTATIC
     Dates: start: 2008
  4. CARAFATE [Concomitant]
     Active Substance: SUCRALFATE
     Dates: start: 20081031
  5. DILAUDID [Concomitant]
     Active Substance: HYDROMORPHONE HYDROCHLORIDE
     Dates: start: 20081024
  6. FENTANYL. [Concomitant]
     Active Substance: FENTANYL
     Dates: start: 20081031
  7. COLACE [Concomitant]
     Active Substance: DOCUSATE SODIUM
     Dates: start: 20081024
  8. ZOFRAN [Concomitant]
     Active Substance: ONDANSETRON HYDROCHLORIDE
     Dates: start: 20081024

REACTIONS (1)
  - Thrombocytopenia [Unknown]
